FAERS Safety Report 8783255 (Version 1)
Quarter: 2012Q4

REPORT INFORMATION
  Report Type: 
  Country: BR (occurrence: BR)
  Receive Date: 20120913
  Receipt Date: 20120913
  Transmission Date: 20130627
  Serious: Yes (Other)
  Sender: FDA-Public Use
  Company Number: BR-JNJFOC-20120902272

PATIENT
  Age: 17 Year
  Sex: Female

DRUGS (1)
  1. TYLEX [Suspect]
     Indication: PROCEDURAL PAIN
     Route: 048

REACTIONS (4)
  - Syncope [Unknown]
  - Abdominal pain [Unknown]
  - Dizziness [Unknown]
  - Nausea [Unknown]
